FAERS Safety Report 7756479-0 (Version None)
Quarter: 2011Q3

REPORT INFORMATION
  Report Type: 
  Country: None (occurrence: None)
  Receive Date: 20110901
  Receipt Date: 20110516
  Transmission Date: 20111222
  Serious: Yes (Life-Threatening, Other)
  Sender: FDA-Public Use
  Company Number: 003-050

PATIENT
  Age: 23 Year
  Sex: Male

DRUGS (2)
  1. CROFAB [Suspect]
     Indication: SNAKE BITE
     Dosage: TOTAL 10 VIALS
     Dates: start: 20100701
  2. CROFAB [Suspect]

REACTIONS (15)
  - RESPIRATORY RATE INCREASED [None]
  - WHEEZING [None]
  - SINUS TACHYCARDIA [None]
  - BODY TEMPERATURE INCREASED [None]
  - CHEST DISCOMFORT [None]
  - HYPOAESTHESIA ORAL [None]
  - VOMITING [None]
  - HYPOTENSION [None]
  - SWELLING [None]
  - DEFAECATION URGENCY [None]
  - WHITE BLOOD CELL COUNT INCREASED [None]
  - URTICARIA [None]
  - PARAESTHESIA ORAL [None]
  - BLOOD PRESSURE INCREASED [None]
  - NAUSEA [None]
